FAERS Safety Report 25369488 (Version 4)
Quarter: 2025Q4

REPORT INFORMATION
  Report Type: Report from Study
  Country: US (occurrence: None)
  Receive Date: 20250528
  Receipt Date: 20251221
  Transmission Date: 20260117
  Serious: Yes (Other)
  Sender: UCB
  Company Number: US-UCBSA-2025031513

PATIENT
  Age: 19 Year
  Weight: 36 kg

DRUGS (4)
  1. FENFLURAMINE [Suspect]
     Active Substance: FENFLURAMINE
     Indication: Lennox-Gastaut syndrome
     Dosage: 7 MILLILITER, 2X/DAY (BID)
  2. FENFLURAMINE [Suspect]
     Active Substance: FENFLURAMINE
     Dosage: 30.8 MG/DAY
  3. FENFLURAMINE [Suspect]
     Active Substance: FENFLURAMINE
     Dosage: 0.2 MILLIGRAM/KILOGRAM
  4. FENFLURAMINE [Suspect]
     Active Substance: FENFLURAMINE
     Dosage: 30.8 MILLIGRAM PER DAY

REACTIONS (3)
  - Tricuspid valve incompetence [Unknown]
  - Aortic dilatation [Not Recovered/Not Resolved]
  - Off label use [Unknown]
